FAERS Safety Report 5565748-4 (Version None)
Quarter: 2007Q4

REPORT INFORMATION
  Report Type: 
  Country: None (occurrence: None)
  Receive Date: 20071218
  Receipt Date: 20071206
  Transmission Date: 20080405
  Serious: Yes (Death)
  Sender: FDA-Public Use
  Company Number: JP-GENENTECH-249139

PATIENT
  Sex: Male

DRUGS (8)
  1. BEVACIZUMAB [Suspect]
     Indication: COLON CANCER
     Dosage: 5 MG/KG, QD
     Route: 042
     Dates: start: 20070903, end: 20070918
  2. OXALIPLATIN [Suspect]
     Indication: COLON CANCER
     Dosage: 68 MG/M2, UNK
     Route: 041
     Dates: start: 20070817, end: 20070917
  3. ISOVORIN [Suspect]
     Indication: COLON CANCER
     Dosage: 160 MG/M2, UNK
     Route: 041
     Dates: start: 20070817, end: 20070917
  4. FLUOROURACIL [Suspect]
     Indication: COLON CANCER
     Dosage: 320 MG/M2, UNK
     Route: 042
     Dates: start: 20070817, end: 20070919
  5. NAFTOPIDIL [Concomitant]
     Indication: DRUG USE FOR UNKNOWN INDICATION
     Dates: start: 20070806
  6. POLLEN NOS [Concomitant]
     Indication: DRUG USE FOR UNKNOWN INDICATION
     Dates: start: 20070806
  7. PROPIVERIN HCL [Concomitant]
     Indication: DRUG USE FOR UNKNOWN INDICATION
     Dates: start: 20070806
  8. URSO 250 [Concomitant]
     Indication: DRUG USE FOR UNKNOWN INDICATION
     Dates: start: 20070806

REACTIONS (1)
  - CARDIAC FAILURE [None]
